FAERS Safety Report 9219382 (Version 2)
Quarter: 2013Q4

REPORT INFORMATION
  Report Type: Spontaneous
  Country: SE (occurrence: SE)
  Receive Date: 20130409
  Receipt Date: 20131118
  Transmission Date: 20140711
  Serious: Yes (Death, Hospitalization, Other)
  Sender: FDA-Public Use
  Company Number: SE-ELI_LILLY_AND_COMPANY-SE201304001362

PATIENT
  Age: 66 Year
  Sex: Female
  Weight: 84 kg

DRUGS (12)
  1. ALIMTA [Suspect]
     Indication: LUNG ADENOCARCINOMA STAGE IV
     Dosage: 500 MG/M2, CYCLICAL
     Dates: start: 20130222
  2. ALIMTA [Suspect]
     Dosage: 1 DF, SINGLE
     Dates: start: 20130315
  3. FOLIC ACID [Concomitant]
  4. VITAMIN B12                        /00056201/ [Concomitant]
  5. CISPLATIN [Concomitant]
     Indication: LUNG ADENOCARCINOMA STAGE IV
     Dosage: UNK, SINGLE
     Dates: start: 20130222
  6. CISPLATIN [Concomitant]
     Dosage: UNK, SINGLE
     Dates: start: 20130315
  7. SYMBICORT [Concomitant]
     Dosage: 1 DF, BID
     Route: 055
     Dates: start: 20130118
  8. SPIRIVA [Concomitant]
     Dosage: 18 UG, QD
     Dates: start: 20130118
  9. VENTOLINE                          /00139501/ [Concomitant]
     Dosage: 1 DF, PRN
     Route: 055
  10. ALVEDON [Concomitant]
     Dosage: 500 MG, PRN
  11. IPREN [Concomitant]
     Dosage: 400 MG, PRN
  12. OMEPRAZOL [Concomitant]
     Dosage: 20 MG, QD

REACTIONS (4)
  - Pulmonary haemorrhage [Fatal]
  - Malignant neoplasm progression [Not Recovered/Not Resolved]
  - Fatigue [Unknown]
  - Nausea [Unknown]
